FAERS Safety Report 24742442 (Version 3)
Quarter: 2025Q1

REPORT INFORMATION
  Report Type: Other
  Country: US (occurrence: US)
  Receive Date: 20241217
  Receipt Date: 20250119
  Transmission Date: 20250409
  Serious: Yes (Death)
  Sender: TRAVERE THERAPEUTICS
  Company Number: US-TRAVERE-2024TVT01256

PATIENT
  Age: 86 Year
  Sex: Female

DRUGS (2)
  1. FILSPARI [Suspect]
     Active Substance: SPARSENTAN
     Indication: Chronic kidney disease
     Route: 048
     Dates: start: 202402
  2. FILSPARI [Suspect]
     Active Substance: SPARSENTAN
     Indication: Blepharitis

REACTIONS (3)
  - Death [Fatal]
  - Product use in unapproved indication [Unknown]
  - Dyspnoea [Unknown]

NARRATIVE: CASE EVENT DATE: 20240201
